FAERS Safety Report 8252714-3 (Version None)
Quarter: 2012Q2

REPORT INFORMATION
  Report Type: 
  Country: None (occurrence: None)
  Receive Date: 20120402
  Receipt Date: 20110817
  Transmission Date: 20120825
  Serious: No
  Sender: FDA-Public Use
  Company Number: US-ABBOTT-11P-163-0848297-00

PATIENT
  Age: 42 Year
  Sex: Male
  Weight: 81.72 kg

DRUGS (4)
  1. ANDROGEL [Suspect]
     Indication: BLOOD TESTOSTERONE DECREASED
     Dosage: 6 PUMPS PER DAY
     Dates: start: 20110101
  2. REMICADE [Concomitant]
     Indication: CROHN'S DISEASE
  3. ANDROGEL [Suspect]
     Dosage: 4 PUMPS PER DAY
     Dates: start: 20110601
  4. ANDROGEL [Suspect]

REACTIONS (3)
  - LIBIDO DECREASED [None]
  - ASTHENIA [None]
  - DRUG INEFFECTIVE [None]
